FAERS Safety Report 8463886-X (Version None)
Quarter: 2012Q2

REPORT INFORMATION
  Report Type: 
  Country: None (occurrence: None)
  Receive Date: 20120625
  Receipt Date: 20120619
  Transmission Date: 20120825
  Serious: Yes (Other)
  Sender: FDA-Public Use
  Company Number: US-PFIZER INC-2009178595

PATIENT
  Sex: Male
  Weight: 83 kg

DRUGS (7)
  1. ZETIA [Concomitant]
     Dosage: 10 MG, UNK
  2. ATENOLOL [Concomitant]
     Dosage: UNK
  3. NEXIUM [Concomitant]
     Dosage: UNK
  4. FISH OIL [Concomitant]
     Dosage: UNK
  5. AMARYL [Concomitant]
     Dosage: UNK
  6. LIPITOR [Suspect]
     Indication: BLOOD CHOLESTEROL INCREASED
     Dosage: 80 MG, 1X/DAY
  7. VASOTEC [Concomitant]
     Dosage: UNK

REACTIONS (5)
  - HIP FRACTURE [None]
  - FALL [None]
  - DRUG INEFFECTIVE [None]
  - GLUCOSE TOLERANCE IMPAIRED [None]
  - ARTHROPATHY [None]
